FAERS Safety Report 6832464-8 (Version None)
Quarter: 2010Q3

REPORT INFORMATION
  Report Type: 
  Country: None (occurrence: None)
  Receive Date: 20100712
  Receipt Date: 20070310
  Transmission Date: 20110219
  Serious: No
  Sender: FDA-Public Use
  Company Number: US-PFIZER INC-2007020467

PATIENT
  Sex: Female
  Weight: 61.69 kg

DRUGS (7)
  1. CHANTIX [Suspect]
     Indication: SMOKING CESSATION THERAPY
     Route: 048
     Dates: start: 20070309, end: 20070310
  2. EFFEXOR [Concomitant]
     Route: 048
  3. ESTROPIPATE [Concomitant]
     Route: 048
  4. PROMETRIUM [Concomitant]
     Route: 048
  5. KLONOPIN [Concomitant]
     Route: 048
  6. SYNTHROID [Concomitant]
  7. NICOTINE [Concomitant]

REACTIONS (3)
  - AGITATION [None]
  - DISSOCIATION [None]
  - PALPITATIONS [None]
